FAERS Safety Report 5735178-0 (Version None)
Quarter: 2008Q2

REPORT INFORMATION
  Report Type: 
  Country: None (occurrence: None)
  Receive Date: 20080512
  Receipt Date: 20080501
  Transmission Date: 20081010
  Serious: Yes (Life-Threatening, Hospitalization)
  Sender: FDA-Public Use
  Company Number: GB-ELI_LILLY_AND_COMPANY-GB200703001949

PATIENT
  Age: 50 Year
  Sex: Female

DRUGS (3)
  1. FLUOXETINE [Suspect]
     Indication: DEPRESSION
     Dosage: 20 MG, UNK
     Route: 048
     Dates: start: 20061109, end: 20061215
  2. ESTROGENIC SUBSTANCE [Concomitant]
     Indication: MENOPAUSE
     Dosage: UNK, UNK
     Route: 062
     Dates: start: 20061201, end: 20061204
  3. ZOLMITRIPTAN [Concomitant]
     Indication: MIGRAINE
     Dosage: 2.5 MG, UNK
     Route: 048
     Dates: start: 20010101

REACTIONS (6)
  - CONTUSION [None]
  - LIP SWELLING [None]
  - NAIL DISORDER [None]
  - SWELLING FACE [None]
  - SYSTEMIC LUPUS ERYTHEMATOSUS [None]
  - URTICARIA [None]
